FAERS Safety Report 6647448-2 (Version None)
Quarter: 2010Q1

REPORT INFORMATION
  Report Type: 
  Country: None (occurrence: None)
  Receive Date: 20100323
  Receipt Date: 20100316
  Transmission Date: 20100710
  Serious: Yes (Death, Hospitalization)
  Sender: FDA-Public Use
  Company Number: JP-ABBOTT-09P-087-0614375-00

PATIENT
  Sex: Female
  Weight: 41 kg

DRUGS (27)
  1. HUMIRA [Suspect]
     Indication: RHEUMATOID ARTHRITIS
     Route: 058
     Dates: start: 20090521, end: 20091001
  2. TACROLIMUS HYDRATE [Concomitant]
     Indication: RHEUMATOID ARTHRITIS
     Dosage: DAILY
     Route: 048
     Dates: start: 20091002
  3. PREDNISOLONE [Concomitant]
     Indication: PROPHYLAXIS
     Dosage: DAILY
     Route: 042
     Dates: start: 20091002, end: 20091010
  4. PREDNISOLONE [Concomitant]
     Indication: ADVERSE REACTION
  5. ISOSORBIDE MONONITRATE [Concomitant]
     Indication: PROPHYLAXIS
     Dosage: DAILY
     Route: 048
     Dates: end: 20091002
  6. ISOSORBIDE MONONITRATE [Concomitant]
     Indication: ADVERSE REACTION
     Dosage: 2.5
     Route: 048
     Dates: end: 20091002
  7. RABEPRAZOLE SODIUM [Concomitant]
     Indication: PROPHYLAXIS
     Dosage: DAILY
     Route: 048
     Dates: end: 20091002
  8. RABEPRAZOLE SODIUM [Concomitant]
     Indication: ADVERSE EVENT
  9. MOSAPRIDE CITRATE HYDRATE [Concomitant]
     Indication: PROPHYLAXIS
     Dosage: DAILY
     Route: 048
     Dates: end: 20091002
  10. MOSAPRIDE CITRATE HYDRATE [Concomitant]
     Indication: ADVERSE EVENT
  11. ALUMINUM HYDROXIDE/MAGNESIIUM HYDROXIDE [Concomitant]
     Indication: PROPHYLAXIS
     Dosage: DAILY
     Dates: end: 20091009
  12. ALUMINUM HYDROXIDE/MAGNESIIUM HYDROXIDE [Concomitant]
     Indication: ADVERSE EVENT
  13. BROTIZOLAM [Concomitant]
     Indication: PROPHYLAXIS
     Dosage: DAILY
     Route: 048
     Dates: end: 20091002
  14. BROTIZOLAM [Concomitant]
     Indication: ADVERSE EVENT
  15. BIFIDOBACTERIUM [Concomitant]
     Indication: PROPHYLAXIS
     Dosage: DAILY
     Route: 048
     Dates: start: 20090630, end: 20090710
  16. BIFIDOBACTERIUM [Concomitant]
     Indication: ADVERSE EVENT
  17. SOLIFENACIN SUCCINATE [Concomitant]
     Indication: PROPHYLAXIS
     Dosage: DAILY
     Route: 048
     Dates: start: 20090718, end: 20091002
  18. SOLIFENACIN SUCCINATE [Concomitant]
     Indication: ADVERSE EVENT
  19. SENNOSIDE [Concomitant]
     Indication: PROPHYLAXIS
     Dosage: QUANTUM SUFFICIAT / 24 /Q.S.
     Route: 048
     Dates: start: 20090824, end: 20090925
  20. SENNOSIDE [Concomitant]
     Indication: ADVERSE EVENT
  21. COUGHCODE-N [Concomitant]
     Indication: PROPHYLAXIS
     Dosage: DAILY
     Route: 048
     Dates: start: 20090910, end: 20090920
  22. COUGHCODE-N [Concomitant]
     Indication: ADVERSE EVENT
  23. DICLOFENAC SODIUM [Concomitant]
     Indication: RHEUMATOID ARTHRITIS
     Dosage: QUANTUM SUFICIAT / 1 SHEET / Q.S.
     Route: 062
     Dates: start: 20090730, end: 20090806
  24. SODIUM BICARBONATE/ANHYDROUS MONOBASIC SODIUM PHOSPHATE [Concomitant]
     Indication: PROPHYLAXIS
     Dosage: DAILY
     Route: 054
     Dates: start: 20090812, end: 20090816
  25. SODIUM BICARBONATE/ANHYDROUS MONOBASIC SODIUM PHOSPHATE [Concomitant]
     Indication: ADVERSE EVENT
  26. PROVIDONE-IODINE [Concomitant]
     Indication: ADVERSE EVENT
     Dosage: QUANTUM SUFFICIAT / 60 ML / Q.S.
     Route: 048
     Dates: start: 20090918, end: 20090930
  27. PROVIDONE-IODINE [Concomitant]
     Indication: PROPHYLAXIS

REACTIONS (7)
  - ANAEMIA [None]
  - DISSEMINATED INTRAVASCULAR COAGULATION [None]
  - ESCHERICHIA INFECTION [None]
  - OESOPHAGEAL ULCER [None]
  - PYELONEPHRITIS [None]
  - SEPSIS [None]
  - SHOCK [None]
